FAERS Safety Report 21009699 (Version 1)
Quarter: 2022Q2

REPORT INFORMATION
  Report Type: Spontaneous
  Country: TR (occurrence: TR)
  Receive Date: 20220627
  Receipt Date: 20220627
  Transmission Date: 20220721
  Serious: Yes (Hospitalization)
  Sender: FDA-Public Use
  Company Number: TR-ALVOGEN-2022-ALVOGEN-120571

PATIENT
  Age: 66 Year
  Sex: Female

DRUGS (3)
  1. VALSARTAN [Suspect]
     Active Substance: VALSARTAN
     Indication: Hyperkalaemia
     Route: 065
     Dates: start: 20220506
  2. LISINOPRIL [Suspect]
     Active Substance: LISINOPRIL
     Indication: Chronic kidney disease
     Route: 048
     Dates: start: 20220308, end: 20220316
  3. SODIUM ZIRCONIUM CYCLOSILICATE [Suspect]
     Active Substance: SODIUM ZIRCONIUM CYCLOSILICATE
     Indication: Chronic kidney disease
     Route: 048
     Dates: start: 20220315, end: 20220414

REACTIONS (1)
  - Diabetic foot infection [Recovered/Resolved]

NARRATIVE: CASE EVENT DATE: 20220308
